FAERS Safety Report 11930619 (Version 1)
Quarter: 2016Q1

REPORT INFORMATION
  Report Type: Spontaneous
  Country: US (occurrence: None)
  Receive Date: 20160120
  Receipt Date: 20160120
  Transmission Date: 20160526
  Serious: Yes (Hospitalization)
  Sender: FDA-Public Use
  Company Number: None

PATIENT
  Age: 31 Year
  Sex: Male
  Weight: 154.2 kg

DRUGS (7)
  1. RITUXIMAB [Suspect]
     Active Substance: RITUXIMAB
     Dates: end: 20151204
  2. DOXORUBICIN HYDROCHLORIDE. [Suspect]
     Active Substance: DOXORUBICIN HYDROCHLORIDE
     Dates: end: 20151204
  3. ETOPOSIDE (VP-16) [Suspect]
     Active Substance: ETOPOSIDE
     Dates: end: 20151204
  4. VINCRISTINE SULFATE. [Suspect]
     Active Substance: VINCRISTINE SULFATE
     Dates: end: 20151211
  5. CYCLOPHOSPHAMIDE. [Suspect]
     Active Substance: CYCLOPHOSPHAMIDE
     Dates: end: 20151208
  6. METHOTREXATE [Suspect]
     Active Substance: METHOTREXATE
     Dates: end: 20151209
  7. PREDNISONE. [Suspect]
     Active Substance: PREDNISONE
     Dates: end: 20160108

REACTIONS (6)
  - Swollen tongue [None]
  - Oropharyngeal pain [None]
  - Headache [None]
  - Malaise [None]
  - Dysphagia [None]
  - Pyrexia [None]

NARRATIVE: CASE EVENT DATE: 20160110
